FAERS Safety Report 11433513 (Version 1)
Quarter: 2015Q3

REPORT INFORMATION
  Report Type: Spontaneous
  Country: US (occurrence: None)
  Receive Date: 20150828
  Receipt Date: 20150828
  Transmission Date: 20151125
  Serious: Yes (Hospitalization)
  Sender: FDA-Public Use
  Company Number: None

PATIENT
  Age: 80 Year
  Sex: Male
  Weight: 87.7 kg

DRUGS (1)
  1. CARBIDOPA/LEVODOPA [Suspect]
     Active Substance: CARBIDOPA\LEVODOPA
     Indication: PARKINSON^S DISEASE
     Dosage: HALF TABLET TID PO
     Route: 048
     Dates: start: 20140501, end: 20150617

REACTIONS (3)
  - Dystonia [None]
  - Hypotension [None]
  - Seizure [None]

NARRATIVE: CASE EVENT DATE: 20150529
